FAERS Safety Report 5211610-6 (Version None)
Quarter: 2007Q1

REPORT INFORMATION
  Report Type: 
  Country: None (occurrence: None)
  Receive Date: 20070118
  Receipt Date: 20070108
  Transmission Date: 20070707
  Serious: Yes (Other)
  Sender: FDA-Public Use
  Company Number: PHFR2006GB03759

PATIENT
  Age: 37 Year
  Sex: Male

DRUGS (5)
  1. TEGRETOL [Suspect]
     Indication: EPILEPSY
     Dosage: 800MG MANE + 800MG NOCTE
     Route: 065
  2. TOPAMAX [Suspect]
     Indication: EPILEPSY
     Dosage: 600MG MANE + 600MG NOCTE
  3. PHENYTOIN SODIUM CAP [Suspect]
     Indication: EPILEPSY
     Dosage: 400MG/MANE
  4. ESCITALOPRAM OXALATE [Suspect]
     Indication: ANTIDEPRESSANT THERAPY
     Dosage: 10MG MANE
  5. ZYPREXA [Suspect]
     Indication: PARANOIA
     Dosage: 7.5MG PRN

REACTIONS (9)
  - CONFUSIONAL STATE [None]
  - DEPRESSION [None]
  - FATIGUE [None]
  - GAIT DISTURBANCE [None]
  - HEMIPARESIS [None]
  - MENTAL DISORDER [None]
  - MENTAL IMPAIRMENT [None]
  - PARANOIA [None]
  - PARTIAL SEIZURES [None]
